FAERS Safety Report 9525194 (Version 3)
Quarter: 2013Q4

REPORT INFORMATION
  Report Type: Spontaneous
  Country: US (occurrence: US)
  Receive Date: 20130916
  Receipt Date: 20131227
  Transmission Date: 20140711
  Serious: Yes (Death, Hospitalization)
  Sender: FDA-Public Use
  Company Number: US-CELGENEUS-163-21880-13091376

PATIENT
  Age: 80 Year
  Sex: Female

DRUGS (2)
  1. REVLIMID [Suspect]
     Indication: MYELODYSPLASTIC SYNDROME
     Dosage: 10 MILLIGRAM
     Route: 048
     Dates: start: 201303, end: 2013
  2. DIURETICS [Concomitant]
     Indication: FLUID OVERLOAD
     Route: 065
     Dates: start: 201309

REACTIONS (2)
  - Respiratory failure [Fatal]
  - Myelodysplastic syndrome [Fatal]
